FAERS Safety Report 7628363-4 (Version None)
Quarter: 2011Q3

REPORT INFORMATION
  Report Type: 
  Country: None (occurrence: None)
  Receive Date: 20110721
  Receipt Date: 20110721
  Transmission Date: 20111222
  Serious: Yes (Hospitalization)
  Sender: FDA-Public Use
  Company Number: None

PATIENT
  Age: 59 Year
  Sex: Male
  Weight: 92.3 kg

DRUGS (2)
  1. OLANZAPINE [Suspect]
     Dosage: 20 MG BID PO
     Route: 048
     Dates: start: 20100528, end: 20110521
  2. DIVALPROEX SODIUM [Suspect]
     Dosage: 2000MG SA HS PO
     Route: 048
     Dates: start: 20100508, end: 20110521

REACTIONS (6)
  - RED BLOOD CELL COUNT DECREASED [None]
  - HAEMATOCRIT DECREASED [None]
  - THROMBOCYTOPENIA [None]
  - BRADYPHRENIA [None]
  - HAEMOGLOBIN DECREASED [None]
  - GAIT DISTURBANCE [None]
